FAERS Safety Report 7369186-3 (Version None)
Quarter: 2011Q1

REPORT INFORMATION
  Report Type: 
  Country: None (occurrence: None)
  Receive Date: 20110323
  Receipt Date: 20110321
  Transmission Date: 20110831
  Serious: Yes (Other)
  Sender: FDA-Public Use
  Company Number: A0918618A

PATIENT
  Age: 45 Year
  Sex: Female

DRUGS (1)
  1. ALLI [Suspect]
     Route: 048
     Dates: start: 20100901, end: 20101001

REACTIONS (6)
  - MALAISE [None]
  - FREQUENT BOWEL MOVEMENTS [None]
  - COLITIS ULCERATIVE [None]
  - HAEMATOCHEZIA [None]
  - DIARRHOEA [None]
  - RECTAL DISCHARGE [None]
